FAERS Safety Report 11115864 (Version 1)
Quarter: 2015Q2

REPORT INFORMATION
  Report Type: Spontaneous
  Country: US (occurrence: None)
  Receive Date: 20150514
  Receipt Date: 20150514
  Transmission Date: 20150821
  Serious: No
  Sender: FDA-Public Use
  Company Number: None

PATIENT
  Age: 70 Year
  Sex: Female

DRUGS (1)
  1. EXJADE [Suspect]
     Active Substance: DEFERASIROX
     Indication: IRON OVERLOAD
     Route: 048
     Dates: start: 20120524

REACTIONS (4)
  - Drug dose omission [None]
  - Weight decreased [None]
  - Memory impairment [None]
  - Rehabilitation therapy [None]

NARRATIVE: CASE EVENT DATE: 20150512
